FAERS Safety Report 6668698-5 (Version None)
Quarter: 2010Q2

REPORT INFORMATION
  Report Type: 
  Country: None (occurrence: None)
  Receive Date: 20100402
  Receipt Date: 20100318
  Transmission Date: 20101027
  Serious: Yes (Other)
  Sender: FDA-Public Use
  Company Number: 009024

PATIENT
  Sex: Female

DRUGS (2)
  1. LEVOCETIRIZINE DIHYCHLORIDE [Suspect]
     Indication: RHINITIS
     Dosage: (5 MG ORAL)
     Route: 048
     Dates: start: 20100307, end: 20100307
  2. PAROXETINE HCL [Concomitant]

REACTIONS (1)
  - VENTRICULAR TACHYCARDIA [None]
